FAERS Safety Report 8289950-6 (Version None)
Quarter: 2012Q2

REPORT INFORMATION
  Report Type: 
  Country: None (occurrence: None)
  Receive Date: 20120417
  Receipt Date: 20110617
  Transmission Date: 20120825
  Serious: Yes (Death, Hospitalization, Other)
  Sender: FDA-Public Use
  Company Number: JP-PFIZER INC-2011099352

PATIENT
  Age: 77 Year
  Sex: Male

DRUGS (9)
  1. LYRICA [Suspect]
     Dosage: 300 MG, 1X/DAY
     Route: 048
     Dates: start: 20110421, end: 20110426
  2. GLIMEPIRIDE [Concomitant]
     Dosage: 0.5 MG, 1X/DAY
     Route: 048
  3. LYRICA [Suspect]
     Indication: NEURALGIA
     Dosage: 150 MG, 1X/DAY
     Route: 048
     Dates: start: 20110405, end: 20110418
  4. SPIRONOLACTONE [Concomitant]
     Dosage: 25 MG, 1X/DAY
  5. LYRICA [Suspect]
     Dosage: 225 MG, 1X/DAY
     Route: 048
     Dates: start: 20110419, end: 20110420
  6. LASIX [Concomitant]
     Dosage: 40 MG, 1X/DAY
  7. JANUVIA [Concomitant]
     Dosage: 50 MG, 1X/DAY
     Route: 048
  8. MICARDIS [Concomitant]
     Dosage: 20 MG, 1X/DAY
     Route: 048
  9. ZOPICOOL [Concomitant]
     Dosage: 1 DF, 1X/DAY

REACTIONS (3)
  - BLOOD BILIRUBIN INCREASED [None]
  - JAUNDICE [None]
  - DEATH [None]
